FAERS Safety Report 5024308-4 (Version None)
Quarter: 2006Q2

REPORT INFORMATION
  Report Type: 
  Country: None (occurrence: None)
  Receive Date: 20060613
  Receipt Date: 20060105
  Transmission Date: 20061013
  Serious: Yes (Other)
  Sender: FDA-Public Use
  Company Number: PHEH2006US00612

PATIENT
  Age: 67 Year
  Sex: Female

DRUGS (3)
  1. DIOVAN [Suspect]
     Indication: HYPERTENSION
     Dosage: UNK, QD
     Route: 048
  2. DIOVAN [Suspect]
  3. TOPROL-XL [Suspect]
     Dosage: 25 MG IN THE MORNING
     Route: 048
     Dates: start: 20020101

REACTIONS (7)
  - CARDIAC VALVE DISEASE [None]
  - CARDIOMEGALY [None]
  - DIZZINESS [None]
  - DYSURIA [None]
  - ERUCTATION [None]
  - OCULAR HYPERAEMIA [None]
  - URINE ANALYSIS ABNORMAL [None]
